FAERS Safety Report 7403817-4 (Version None)
Quarter: 2011Q2

REPORT INFORMATION
  Report Type: 
  Country: None (occurrence: None)
  Receive Date: 20110401
  Receipt Date: 20110318
  Transmission Date: 20111010
  Serious: Yes (Hospitalization)
  Sender: FDA-Public Use
  Company Number: 020359

PATIENT
  Sex: Male

DRUGS (14)
  1. PREDNISOLONE [Suspect]
     Indication: RHEUMATOID ARTHRITIS
     Dosage: (5 MG ORAL), (5 MG ORAL)
     Route: 048
     Dates: start: 20090611
  2. REBAMIPIDE [Concomitant]
  3. DIMEMORFAN PHOSPHATE [Concomitant]
  4. LOXOPROFEN SODIUM [Concomitant]
  5. TRANEXAMIC ACID [Concomitant]
  6. ACETAMINOPHEN [Concomitant]
  7. METHOTREXATE [Suspect]
     Indication: RHEUMATOID ARTHRITIS
     Dosage: (8 MG ORAL), (8 MG ORAL), (4 MG ORAL)
     Route: 048
     Dates: start: 20101023, end: 20101212
  8. METHOTREXATE [Suspect]
     Indication: RHEUMATOID ARTHRITIS
     Dosage: (8 MG ORAL), (8 MG ORAL), (4 MG ORAL)
     Route: 048
     Dates: start: 20101218, end: 20110305
  9. METHOTREXATE [Suspect]
     Indication: RHEUMATOID ARTHRITIS
     Dosage: (8 MG ORAL), (8 MG ORAL), (4 MG ORAL)
     Route: 048
     Dates: start: 20090808, end: 20100926
  10. COUGH AND COLD PREPARATIONS [Concomitant]
  11. CERTOLIZUMAB PEGOL (CERTOLIZUMAB PEGOL) [Suspect]
     Indication: RHEUMATOID ARTHRITIS
     Dosage: SEE IMAGE
     Route: 058
     Dates: start: 20101022, end: 20110225
  12. CERTOLIZUMAB PEGOL (CERTOLIZUMAB PEGOL) [Suspect]
     Indication: RHEUMATOID ARTHRITIS
     Dosage: SEE IMAGE
     Route: 058
     Dates: end: 20100618
  13. CERTOLIZUMAB PEGOL (CERTOLIZUMAB PEGOL) [Suspect]
     Indication: RHEUMATOID ARTHRITIS
     Dosage: SEE IMAGE
     Route: 058
     Dates: start: 20100705, end: 20100924
  14. CERTOLIZUMAB PEGOL (CERTOLIZUMAB PEGOL) [Suspect]
     Indication: RHEUMATOID ARTHRITIS
     Dosage: SEE IMAGE
     Route: 058
     Dates: start: 20091217

REACTIONS (8)
  - PYREXIA [None]
  - IMMUNE SYSTEM DISORDER [None]
  - PNEUMONIA BACTERIAL [None]
  - PNEUMOCOCCAL INFECTION [None]
  - COUGH [None]
  - BRONCHIOLITIS [None]
  - OROPHARYNGEAL PAIN [None]
  - INFLAMMATION [None]
